FAERS Safety Report 9664003 (Version 1)
Quarter: 2013Q4

REPORT INFORMATION
  Report Type: Spontaneous
  Country: CH (occurrence: CH)
  Receive Date: 20131101
  Receipt Date: 20131101
  Transmission Date: 20140711
  Serious: Yes (Hospitalization, Other)
  Sender: FDA-Public Use
  Company Number: CH-ELI_LILLY_AND_COMPANY-CH201310007691

PATIENT
  Age: 74 Year
  Sex: Female

DRUGS (5)
  1. CYMBALTA [Suspect]
     Indication: PRODUCT USED FOR UNKNOWN INDICATION
     Dosage: 60 MG, QD
     Route: 048
     Dates: start: 20130405
  2. IBUPROFEN [Suspect]
     Indication: BACK PAIN
     Dosage: 600 MG, QID
     Route: 048
     Dates: end: 20131002
  3. PONSTAN [Suspect]
     Indication: BACK PAIN
     Dosage: 500 MG, UNKNOWN
     Route: 048
     Dates: end: 20131002
  4. IMOVANE [Concomitant]
     Indication: PRODUCT USED FOR UNKNOWN INDICATION
     Dosage: 7.5 MG, QD
     Route: 048
  5. LANSOPRAZOL [Concomitant]
     Indication: PRODUCT USED FOR UNKNOWN INDICATION
     Dosage: 30 MG, QD
     Route: 048
     Dates: end: 20131002

REACTIONS (8)
  - Weight decreased [Unknown]
  - Diarrhoea [Recovered/Resolved]
  - Vomiting [Recovered/Resolved]
  - Abdominal pain upper [Recovering/Resolving]
  - Colitis [Unknown]
  - Pulmonary mass [Unknown]
  - Gastritis [Unknown]
  - Ovarian cyst [Unknown]
